FAERS Safety Report 6996918-6 (Version None)
Quarter: 2010Q3

REPORT INFORMATION
  Report Type: 
  Country: None (occurrence: None)
  Receive Date: 20100918
  Receipt Date: 20090723
  Transmission Date: 20110219
  Serious: No
  Sender: FDA-Public Use
  Company Number: US-WYE-H10324209

PATIENT
  Sex: Female
  Weight: 54.48 kg

DRUGS (7)
  1. EFFEXOR XR [Suspect]
     Indication: DEPRESSION
     Dosage: UNKNOWN
     Route: 048
     Dates: start: 20060101
  2. EFFEXOR XR [Suspect]
     Indication: ANXIETY
     Dosage: HIGHEST DOSE WAS 150 MG, UNKNOWN DATES
     Route: 048
  3. EFFEXOR XR [Suspect]
     Route: 048
     Dates: start: 20090101, end: 20090621
  4. EFFEXOR XR [Suspect]
     Route: 048
     Dates: start: 20090622, end: 20090702
  5. DILTIAZEM [Concomitant]
  6. ATIVAN [Concomitant]
  7. PRILOSEC [Concomitant]

REACTIONS (15)
  - ATTENTION DEFICIT/HYPERACTIVITY DISORDER [None]
  - BALANCE DISORDER [None]
  - CRYING [None]
  - DIZZINESS [None]
  - DRUG WITHDRAWAL SYNDROME [None]
  - DYSLEXIA [None]
  - FREQUENT BOWEL MOVEMENTS [None]
  - HEADACHE [None]
  - MALAISE [None]
  - MEMORY IMPAIRMENT [None]
  - NAUSEA [None]
  - NIGHTMARE [None]
  - PANIC ATTACK [None]
  - SOMNOLENCE [None]
  - VERTIGO [None]
